FAERS Safety Report 24440666 (Version 2)
Quarter: 2024Q4

REPORT INFORMATION
  Report Type: Report from Study
  Country: CH (occurrence: CH)
  Receive Date: 20241016
  Receipt Date: 20241017
  Transmission Date: 20250115
  Serious: No
  Sender: ROCHE
  Company Number: CH-ROCHE-3204392

PATIENT
  Age: 38 Year
  Sex: Male
  Weight: 81.0 kg

DRUGS (6)
  1. EMICIZUMAB [Suspect]
     Active Substance: EMICIZUMAB
     Indication: Haemophilia A without inhibitors
     Route: 058
     Dates: start: 20210819, end: 20210909
  2. EMICIZUMAB [Suspect]
     Active Substance: EMICIZUMAB
     Route: 058
     Dates: start: 20210916
  3. ANTIHEMOPHILIC FACTOR, HUMAN RECOMBINANT [Concomitant]
     Active Substance: ANTIHEMOPHILIC FACTOR, HUMAN RECOMBINANT
     Indication: Factor VIII deficiency
     Route: 042
     Dates: start: 20161209
  4. ANTIHEMOPHILIC FACTOR, HUMAN RECOMBINANT [Concomitant]
     Active Substance: ANTIHEMOPHILIC FACTOR, HUMAN RECOMBINANT
     Route: 042
     Dates: start: 20230616
  5. TECFIDERA [Concomitant]
     Active Substance: DIMETHYL FUMARATE
     Indication: Multiple sclerosis
     Route: 048
     Dates: start: 2018
  6. TRAZODONE HYDROCHLORIDE [Concomitant]
     Active Substance: TRAZODONE HYDROCHLORIDE
     Indication: Anxiety
     Route: 048
     Dates: start: 2021

REACTIONS (1)
  - Cluster headache [Recovered/Resolved]

NARRATIVE: CASE EVENT DATE: 20220816
